FAERS Safety Report 24210013 (Version 2)
Quarter: 2024Q3

REPORT INFORMATION
  Report Type: Spontaneous
  Country: GR (occurrence: GR)
  Receive Date: 20240814
  Receipt Date: 20240820
  Transmission Date: 20241017
  Serious: Yes (Other)
  Sender: PFIZER
  Company Number: GR-MLMSERVICE-20240801-PI149791-00101-1

PATIENT
  Age: 64 Year
  Sex: Male

DRUGS (24)
  1. CISPLATIN [Suspect]
     Active Substance: CISPLATIN
     Indication: Metastases to liver
     Dosage: UNK UNK, CYCLIC, 6 CYCLES
     Dates: start: 2023
  2. CISPLATIN [Suspect]
     Active Substance: CISPLATIN
     Indication: Adrenal gland cancer metastatic
  3. CISPLATIN [Suspect]
     Active Substance: CISPLATIN
     Indication: Metastases to lung
  4. CISPLATIN [Suspect]
     Active Substance: CISPLATIN
     Indication: Adrenocortical carcinoma
  5. DOXORUBICIN HYDROCHLORIDE [Suspect]
     Active Substance: DOXORUBICIN HYDROCHLORIDE
     Indication: Metastases to liver
     Dosage: UNK UNK, CYCLIC, 6 CYCLES
     Dates: start: 2023
  6. DOXORUBICIN HYDROCHLORIDE [Suspect]
     Active Substance: DOXORUBICIN HYDROCHLORIDE
     Indication: Metastases to lung
  7. DOXORUBICIN HYDROCHLORIDE [Suspect]
     Active Substance: DOXORUBICIN HYDROCHLORIDE
     Indication: Adrenocortical carcinoma
  8. DOXORUBICIN HYDROCHLORIDE [Suspect]
     Active Substance: DOXORUBICIN HYDROCHLORIDE
     Indication: Adrenal gland cancer metastatic
  9. ETOPOSIDE [Suspect]
     Active Substance: ETOPOSIDE
     Indication: Adrenocortical carcinoma
     Dosage: UNK UNK, CYCLIC, 6 CYCLES
     Dates: start: 2023
  10. ETOPOSIDE [Suspect]
     Active Substance: ETOPOSIDE
     Indication: Metastases to liver
  11. ETOPOSIDE [Suspect]
     Active Substance: ETOPOSIDE
     Indication: Metastases to lung
  12. ETOPOSIDE [Suspect]
     Active Substance: ETOPOSIDE
     Indication: Adrenal gland cancer metastatic
  13. MITOTANE [Suspect]
     Active Substance: MITOTANE
     Indication: Adrenocortical carcinoma
     Dosage: HIGH-DOSE/ MAXIMUM
     Dates: start: 2023, end: 2023
  14. MITOTANE [Suspect]
     Active Substance: MITOTANE
     Indication: Metastases to liver
     Dosage: TITRATION OF THE MITOTANE DOSE
     Dates: start: 2023
  15. MITOTANE [Suspect]
     Active Substance: MITOTANE
     Indication: Metastases to lung
     Dosage: TITRATION OF THE MITOTANE DOSE
     Dates: start: 2023
  16. MITOTANE [Suspect]
     Active Substance: MITOTANE
     Indication: Adrenal gland cancer metastatic
  17. FLUDROCORTISONE [Concomitant]
     Active Substance: FLUDROCORTISONE
     Indication: Metastases to lung
     Dosage: UNK
     Dates: start: 2023
  18. FLUDROCORTISONE [Concomitant]
     Active Substance: FLUDROCORTISONE
     Indication: Adrenal gland cancer metastatic
  19. FLUDROCORTISONE [Concomitant]
     Active Substance: FLUDROCORTISONE
     Indication: Metastases to liver
  20. FLUDROCORTISONE [Concomitant]
     Active Substance: FLUDROCORTISONE
     Indication: Adrenocortical carcinoma
  21. HYDROCORTISONE [Concomitant]
     Active Substance: HYDROCORTISONE\HYDROCORTISONE ACETATE
     Indication: Adrenocortical carcinoma
     Dosage: UNK
     Dates: start: 2023
  22. HYDROCORTISONE [Concomitant]
     Active Substance: HYDROCORTISONE\HYDROCORTISONE ACETATE
     Indication: Metastases to lung
  23. HYDROCORTISONE [Concomitant]
     Active Substance: HYDROCORTISONE\HYDROCORTISONE ACETATE
     Indication: Metastases to liver
  24. HYDROCORTISONE [Concomitant]
     Active Substance: HYDROCORTISONE\HYDROCORTISONE ACETATE
     Indication: Adrenal gland cancer metastatic

REACTIONS (7)
  - Nausea [Unknown]
  - Fatigue [Unknown]
  - Gait disturbance [Unknown]
  - Neurological symptom [Unknown]
  - Memory impairment [Unknown]
  - Disturbance in attention [Unknown]
  - Off label use [Unknown]

NARRATIVE: CASE EVENT DATE: 20230101
